FAERS Safety Report 8490300-0 (Version None)
Quarter: 2012Q3

REPORT INFORMATION
  Report Type: 
  Country: None (occurrence: None)
  Receive Date: 20120705
  Receipt Date: 20120627
  Transmission Date: 20120928
  Serious: Yes (Hospitalization)
  Sender: FDA-Public Use
  Company Number: JP-SANOFI-AVENTIS-2012SA046865

PATIENT
  Age: 57 Year
  Sex: Male

DRUGS (6)
  1. FUROSEMIDE [Suspect]
     Route: 065
  2. AMIODARONE HYDROCHLORIDE [Suspect]
     Route: 042
  3. CARPERITIDE [Concomitant]
  4. DILTIAZEM HCL [Suspect]
     Route: 065
  5. DOBUTREX [Concomitant]
  6. LORATADINE [Suspect]
     Route: 048

REACTIONS (5)
  - VENTRICULAR EXTRASYSTOLES [None]
  - SYNCOPE [None]
  - LONG QT SYNDROME [None]
  - VENTRICULAR TACHYCARDIA [None]
  - TORSADE DE POINTES [None]
